FAERS Safety Report 14245505 (Version 1)
Quarter: 2017Q4

REPORT INFORMATION
  Report Type: Spontaneous
  Country: FR (occurrence: FR)
  Receive Date: 20171203
  Receipt Date: 20171203
  Transmission Date: 20180321
  Serious: Yes (Other)
  Sender: FDA-Public Use
  Company Number: FR-MERCK KGAA-2036498

PATIENT
  Age: 41 Year
  Sex: Female

DRUGS (3)
  1. NOVOTHYROX [Suspect]
     Active Substance: LEVOTHYROXINE SODIUM
     Indication: PRODUCT USED FOR UNKNOWN INDICATION
     Dates: start: 201703
  2. LEVOTHYROXINE SODIUM. [Suspect]
     Active Substance: LEVOTHYROXINE SODIUM
     Dates: start: 20170918
  3. LEVOTHYROXINE SODIUM. [Suspect]
     Active Substance: LEVOTHYROXINE SODIUM
     Dates: start: 20170918

REACTIONS (19)
  - Fatigue [None]
  - Myalgia [None]
  - Angina pectoris [None]
  - Vision blurred [None]
  - Anxiety [None]
  - Loss of personal independence in daily activities [None]
  - Malaise [None]
  - Gastrointestinal disorder [None]
  - Depressed mood [None]
  - Insomnia [None]
  - Hypoaesthesia [None]
  - Headache [None]
  - Irritable bowel syndrome [None]
  - Disturbance in attention [None]
  - Memory impairment [None]
  - Paraesthesia [None]
  - Asthenia [None]
  - Muscular weakness [None]
  - Muscle spasms [None]

NARRATIVE: CASE EVENT DATE: 2017
